FAERS Safety Report 9519476 (Version 1)
Quarter: 2013Q1

REPORT INFORMATION
  Report Type: Spontaneous
  Country: US (occurrence: None)
  Receive Date: 20130305
  Receipt Date: 20130305
  Transmission Date: 20140127
  Serious: Yes (Other)
  Sender: FDA-Public Use
  Company Number: 163-21880-12020575

PATIENT
  Age: 42 Year
  Sex: Female

DRUGS (8)
  1. REVLIMID [Suspect]
     Indication: PLASMA CELL MYELOMA
     Route: 048
     Dates: start: 20111206, end: 20111213
  2. VELCADE [Concomitant]
  3. DECADRON (DEXAMETHASONE) [Concomitant]
  4. AREDIA (PAMIDRONATE DISODIUM) [Concomitant]
  5. AMBIEN (ZOLPIDEM TARTRATE) [Concomitant]
  6. VICODIN (VICODIN) [Concomitant]
  7. PRILOSEC [Concomitant]
  8. CYTOXAN (CYCLOPHOSPHAMIDE) [Concomitant]

REACTIONS (3)
  - Liver function test abnormal [None]
  - Rash papular [None]
  - Pruritus [None]
